FAERS Safety Report 20369800 (Version 1)
Quarter: 2022Q1

REPORT INFORMATION
  Report Type: Report from Study
  Country: US (occurrence: None)
  Receive Date: 20220124
  Receipt Date: 20220124
  Transmission Date: 20220423
  Serious: Yes (Death, Life-Threatening, Other)
  Sender: FDA-Public Use
  Company Number: 2022A032824

PATIENT
  Sex: Female
  Weight: 59.4 kg

DRUGS (1)
  1. SYMBICORT [Suspect]
     Active Substance: BUDESONIDE\FORMOTEROL FUMARATE DIHYDRATE
     Indication: Lung cyst removal
     Dosage: SYMBICORT 160/4.5 MCG UNKNOWN
     Route: 055

REACTIONS (9)
  - Death [Fatal]
  - Cardiac arrest [Unknown]
  - Intestinal obstruction [Unknown]
  - Haemorrhage [Unknown]
  - Weight decreased [Unknown]
  - Feeding disorder [Unknown]
  - Ageusia [Unknown]
  - Anosmia [Unknown]
  - SARS-CoV-2 test negative [Unknown]
